FAERS Safety Report 6463297-2 (Version None)
Quarter: 2009Q4

REPORT INFORMATION
  Report Type: 
  Country: None (occurrence: None)
  Receive Date: 20091130
  Receipt Date: 20091124
  Transmission Date: 20100525
  Serious: Yes (Other)
  Sender: FDA-Public Use
  Company Number: US-ASTRAZENECA-2007UW08931

PATIENT
  Age: 415 Month
  Sex: Male
  Weight: 114.4 kg

DRUGS (17)
  1. SEROQUEL [Suspect]
     Indication: BIPOLAR DISORDER
     Dosage: 600MG-800MG
     Route: 048
     Dates: start: 19981101, end: 20060801
  2. SEROQUEL [Suspect]
     Indication: PSYCHOTIC DISORDER
     Dosage: 600MG-800MG
     Route: 048
     Dates: start: 19981101, end: 20060801
  3. SEROQUEL [Suspect]
     Dosage: 100-600 MG, FLUCTUATING
     Route: 048
     Dates: start: 19990630
  4. SEROQUEL [Suspect]
     Dosage: 100-600 MG, FLUCTUATING
     Route: 048
     Dates: start: 19990630
  5. SEROQUEL [Suspect]
     Dosage: 200-600 MG
     Route: 048
     Dates: start: 20001206
  6. SEROQUEL [Suspect]
     Dosage: 200-600 MG
     Route: 048
     Dates: start: 20001206
  7. SEROQUEL [Suspect]
     Dosage: 600MG-800MG
     Route: 048
     Dates: start: 19980101, end: 20060101
  8. SEROQUEL [Suspect]
     Dosage: 600MG-800MG
     Route: 048
     Dates: start: 19980101, end: 20060101
  9. DEPAKOTE [Concomitant]
     Dosage: 150-1500 MG, FLUCTUATING
     Route: 048
  10. DEPAKOTE [Concomitant]
     Dates: start: 20090101
  11. CLONIDINE [Concomitant]
     Route: 048
     Dates: start: 19980803
  12. LITHIUM [Concomitant]
     Dosage: 600-900 MG, FLUCTUATING
     Route: 048
     Dates: start: 19980803
  13. GLUCOTROL XL [Concomitant]
     Dates: start: 20050219
  14. GLUCOPHAGE [Concomitant]
     Indication: DIABETES MELLITUS
     Dates: start: 20041102
  15. LIPITOR [Concomitant]
     Indication: BLOOD CHOLESTEROL INCREASED
     Dosage: 20-40 MG
     Dates: start: 20050219
  16. PRINIVIL [Concomitant]
     Indication: HYPERTENSION
     Dosage: 10-20 MG
     Dates: start: 20050219
  17. PROTONIX [Concomitant]
     Dates: start: 20060101

REACTIONS (8)
  - ADVERSE EVENT [None]
  - DIABETES MELLITUS [None]
  - DIABETES MELLITUS INADEQUATE CONTROL [None]
  - DIABETIC GASTROPARESIS [None]
  - DIABETIC KETOACIDOSIS [None]
  - HYPERGLYCAEMIA [None]
  - HYPERTENSION [None]
  - WEIGHT INCREASED [None]
